FAERS Safety Report 8462615-3 (Version None)
Quarter: 2012Q2

REPORT INFORMATION
  Report Type: 
  Country: None (occurrence: None)
  Receive Date: 20120625
  Receipt Date: 20120619
  Transmission Date: 20120825
  Serious: Yes (Death)
  Sender: FDA-Public Use
  Company Number: US-JNJFOC-20120611427

PATIENT

DRUGS (3)
  1. CYTARABINE [Suspect]
     Indication: ACUTE MYELOID LEUKAEMIA
     Dosage: DAYS 1-7
     Route: 042
  2. IDARUBICIN HCL [Suspect]
     Indication: ACUTE MYELOID LEUKAEMIA
     Dosage: DAYS 1-3
     Route: 042
  3. CLADRIBINE [Suspect]
     Indication: ACUTE MYELOID LEUKAEMIA
     Dosage: DAYS 1-5
     Route: 042

REACTIONS (3)
  - BONE MARROW FAILURE [None]
  - RESPIRATORY FAILURE [None]
  - CEREBROVASCULAR ACCIDENT [None]
